FAERS Safety Report 6503447-2 (Version None)
Quarter: 2009Q4

REPORT INFORMATION
  Report Type: 
  Country: None (occurrence: None)
  Receive Date: 20091217
  Receipt Date: 20091120
  Transmission Date: 20100525
  Serious: No
  Sender: FDA-Public Use
  Company Number: US-BAYER-200917181BCC

PATIENT
  Age: 82 Year
  Sex: Female
  Weight: 45 kg

DRUGS (9)
  1. ALEVE (CAPLET) [Suspect]
     Indication: HEADACHE
     Dosage: TOTAL DAILY DOSE: 220 MG  UNIT DOSE: 220 MG
     Route: 048
     Dates: start: 20091119
  2. PRILOSEC [Concomitant]
     Route: 065
  3. ATENOLOL [Concomitant]
     Route: 065
  4. LORAZEPAM [Concomitant]
     Route: 065
  5. OXYBUTYNIN CHLORIDE [Concomitant]
     Route: 065
  6. SPRING VALLEY VITAMIN D [Concomitant]
     Route: 065
  7. NATURE PLUS MULTI-VITAMIN [Concomitant]
     Route: 065
  8. CALTRATE [Concomitant]
     Route: 065
  9. TYLENOL (CAPLET) [Concomitant]
     Route: 065

REACTIONS (1)
  - HEADACHE [None]
